FAERS Safety Report 7762071-4 (Version None)
Quarter: 2011Q3

REPORT INFORMATION
  Report Type: 
  Country: None (occurrence: None)
  Receive Date: 20110920
  Receipt Date: 20110920
  Transmission Date: 20111222
  Serious: Yes (Other)
  Sender: FDA-Public Use
  Company Number: None

PATIENT
  Age: 39 Year
  Sex: Female
  Weight: 70.306 kg

DRUGS (3)
  1. VIIBRYD [Suspect]
     Indication: GENERALISED ANXIETY DISORDER
     Dosage: 40MG
     Route: 048
     Dates: start: 20110715, end: 20110919
  2. VIIBRYD [Suspect]
     Indication: POST-TRAUMATIC STRESS DISORDER
     Dosage: 40MG
     Route: 048
     Dates: start: 20110715, end: 20110919
  3. VIIBRYD [Suspect]
     Indication: DEPRESSION
     Dosage: 40MG
     Route: 048
     Dates: start: 20110715, end: 20110919

REACTIONS (1)
  - ALOPECIA [None]
